FAERS Safety Report 11322169 (Version 1)
Quarter: 2015Q3

REPORT INFORMATION
  Report Type: Spontaneous
  Country: US (occurrence: US)
  Receive Date: 20150729
  Receipt Date: 20150729
  Transmission Date: 20151125
  Serious: Yes (Other)
  Sender: FDA-Public Use
  Company Number: PHEH2015US009418

PATIENT
  Age: 54 Year
  Sex: Female

DRUGS (5)
  1. GABAPENTIN. [Concomitant]
     Active Substance: GABAPENTIN
     Indication: PRODUCT USED FOR UNKNOWN INDICATION
     Route: 048
  2. GILENYA [Suspect]
     Active Substance: FINGOLIMOD HYDROCHLORIDE
     Indication: RELAPSING-REMITTING MULTIPLE SCLEROSIS
     Dosage: 0.5 MG, QD
     Route: 048
     Dates: start: 20150507, end: 20150508
  3. DETROL LA [Concomitant]
     Active Substance: TOLTERODINE TARTRATE
     Indication: PRODUCT USED FOR UNKNOWN INDICATION
     Route: 065
  4. CYMBALTA [Concomitant]
     Active Substance: DULOXETINE HYDROCHLORIDE
     Indication: PRODUCT USED FOR UNKNOWN INDICATION
     Route: 048
  5. BACLOFEN. [Concomitant]
     Active Substance: BACLOFEN
     Indication: PRODUCT USED FOR UNKNOWN INDICATION
     Route: 048

REACTIONS (16)
  - Atrioventricular block second degree [Recovered/Resolved]
  - Bradycardia [Recovered/Resolved]
  - Blood pressure decreased [Unknown]
  - Hyperreflexia [Unknown]
  - Hypokinesia [Unknown]
  - Anxiety [Unknown]
  - Muscular weakness [Unknown]
  - Visual field defect [Unknown]
  - Hypoaesthesia [Unknown]
  - Depression [Unknown]
  - Coordination abnormal [Unknown]
  - Paraesthesia [Unknown]
  - Pupillary reflex impaired [Unknown]
  - Cerebellar ataxia [Unknown]
  - Muscle spasticity [Unknown]
  - Speech disorder [Unknown]

NARRATIVE: CASE EVENT DATE: 20150507
